FAERS Safety Report 9999166 (Version 1)
Quarter: 2014Q1

REPORT INFORMATION
  Report Type: Spontaneous
  Country: US (occurrence: None)
  Receive Date: 20140311
  Receipt Date: 20140311
  Transmission Date: 20141002
  Serious: Yes (Other)
  Sender: FDA-Public Use
  Company Number: None

PATIENT
  Age: 47 Year
  Sex: Female
  Weight: 68.04 kg

DRUGS (1)
  1. MIRVASO [Suspect]
     Indication: ROSACEA
     Dosage: SMALL AMOUNT TO FACE; APPLIED TO A SURFACE, USUALLY TH SKIN
     Dates: start: 20140303, end: 20140305

REACTIONS (4)
  - Flushing [None]
  - Erythema [None]
  - Ocular hyperaemia [None]
  - Mass [None]
